FAERS Safety Report 8194083-3 (Version None)
Quarter: 2012Q1

REPORT INFORMATION
  Report Type: 
  Country: None (occurrence: None)
  Receive Date: 20120308
  Receipt Date: 20120221
  Transmission Date: 20120608
  Serious: Yes (Hospitalization)
  Sender: FDA-Public Use
  Company Number: FR-VALEANT-2012VX000777

PATIENT
  Age: 28 Year
  Sex: Female

DRUGS (14)
  1. SUFENTANIL CITRATE [Concomitant]
     Route: 065
  2. KETOPROFEN [Concomitant]
     Indication: POSTOPERATIVE ANALGESIA
     Route: 065
  3. PHENYLEPHRINE HCL [Suspect]
     Route: 042
     Dates: start: 20100101
  4. SUFENTANIL CITRATE [Concomitant]
     Route: 065
  5. SEVOFLURANE [Concomitant]
     Route: 065
  6. NEFOPAM [Concomitant]
     Indication: POSTOPERATIVE ANALGESIA
     Route: 065
  7. ATROPINE SULFATE [Concomitant]
     Route: 042
  8. ROPIVACAINE HYDROCHLORIDE [Concomitant]
     Route: 065
  9. ATRACURIUM BESYLATE [Concomitant]
     Route: 065
  10. PROSTIGMIN BROMIDE [Suspect]
     Route: 042
     Dates: start: 20100101
  11. PROPOFOL [Concomitant]
     Route: 065
  12. ACETAMINOPHEN [Concomitant]
     Indication: POSTOPERATIVE ANALGESIA
     Route: 065
  13. MIDAZOLAM [Concomitant]
     Route: 065
  14. PANPHARMA CEFAZOLINE [Concomitant]
     Indication: ANTIBIOTIC PROPHYLAXIS
     Route: 065

REACTIONS (4)
  - STRESS CARDIOMYOPATHY [None]
  - PULMONARY OEDEMA [None]
  - SHOCK [None]
  - WRONG DRUG ADMINISTERED [None]
